FAERS Safety Report 4932650-8 (Version None)
Quarter: 2006Q1

REPORT INFORMATION
  Report Type: 
  Country: None (occurrence: None)
  Receive Date: 20060301
  Receipt Date: 20060214
  Transmission Date: 20060701
  Serious: Yes (Death, Hospitalization, Other)
  Sender: FDA-Public Use
  Company Number: 2006-00377

PATIENT
  Age: 54 Year
  Sex: Male

DRUGS (3)
  1. VELCADE [Suspect]
     Indication: MULTIPLE MYELOMA
     Dosage: 1.30 MG/M2 , INTRAVENOUS
     Route: 042
     Dates: start: 20060210, end: 20060213
  2. ANTIHYPERTENSIVES [Concomitant]
  3. ANXIOLYTICS [Concomitant]

REACTIONS (10)
  - ACUTE PULMONARY OEDEMA [None]
  - BLOOD PRESSURE ABNORMAL [None]
  - BLOOD PRESSURE INCREASED [None]
  - BODY TEMPERATURE INCREASED [None]
  - INFECTION [None]
  - MALAISE [None]
  - MULTI-ORGAN FAILURE [None]
  - SEPSIS [None]
  - SOMNOLENCE [None]
  - VENTRICULAR HYPOKINESIA [None]
